FAERS Safety Report 6442432-6 (Version None)
Quarter: 2009Q4

REPORT INFORMATION
  Report Type: 
  Country: None (occurrence: None)
  Receive Date: 20091112
  Receipt Date: 20091031
  Transmission Date: 20100525
  Serious: Yes (Other)
  Sender: FDA-Public Use
  Company Number: DSA_41945_2009

PATIENT
  Sex: Male

DRUGS (5)
  1. BUPROPION HYDROCHLORIDE [Suspect]
     Indication: DRUG USE FOR UNKNOWN INDICATION
     Dosage: (4500 MG ORAL)
     Dates: start: 20091031, end: 20091031
  2. MIRTAZAPINE [Suspect]
     Indication: DRUG USE FOR UNKNOWN INDICATION
     Dosage: 645 MG ORAL
     Route: 048
     Dates: start: 20091031, end: 20091031
  3. ZYPREXA [Suspect]
     Indication: DRUG USE FOR UNKNOWN INDICATION
     Dosage: 165 MG ORAL
     Route: 048
     Dates: start: 20091031, end: 20091031
  4. IBUPROFEN [Suspect]
     Indication: DRUG USE FOR UNKNOWN INDICATION
     Dosage: DF ORAL
     Route: 048
     Dates: start: 20091031, end: 20091031
  5. SPARKLING WINE-ETHANOL LIQUID [Suspect]
     Indication: DRUG USE FOR UNKNOWN INDICATION
     Dosage: 2 BOTTLES ORAL
     Route: 048
     Dates: start: 20091031, end: 20091031

REACTIONS (9)
  - ALCOHOL USE [None]
  - COMA [None]
  - GASTROINTESTINAL SOUNDS ABNORMAL [None]
  - HYPERTENSION [None]
  - INTENTIONAL OVERDOSE [None]
  - MIOSIS [None]
  - POLYURIA [None]
  - SUICIDE ATTEMPT [None]
  - TACHYCARDIA [None]
